FAERS Safety Report 6909007-3 (Version None)
Quarter: 2010Q3

REPORT INFORMATION
  Report Type: 
  Country: None (occurrence: None)
  Receive Date: 20100805
  Receipt Date: 20100730
  Transmission Date: 20110219
  Serious: Yes (Hospitalization, Other)
  Sender: FDA-Public Use
  Company Number: GB-WYE-H16111810

PATIENT
  Age: 20 Year
  Sex: Female

DRUGS (5)
  1. IBUPROFEN [Suspect]
     Indication: TOOTHACHE
     Dosage: 16 IBUPROFEN, CALCULATED TO APPROXIMATELY 80 MG/KG
     Route: 048
  2. LIDOCAINE [Concomitant]
     Dosage: UNKNOWN
     Route: 065
  3. BUPIVACAINE HCL [Concomitant]
     Dosage: UNKNOWN
     Route: 065
  4. ACETAMINOPHEN [Suspect]
     Indication: TOOTHACHE
     Dosage: 16 PARACETAMOL CALCULATED AS APPROXIMATELY 225 MG/KG
     Route: 048
  5. ACETAMINOPHEN AND CODEINE PHOSPHATE [Suspect]
     Indication: TOOTHACHE
     Dosage: TWO CO-CODAMOL X 1
     Route: 048

REACTIONS (3)
  - ACCIDENTAL OVERDOSE [None]
  - DRUG ADMINISTRATION ERROR [None]
  - DRUG TOXICITY [None]
